FAERS Safety Report 12394446 (Version 1)
Quarter: 2016Q2

REPORT INFORMATION
  Report Type: Spontaneous
  Country: TR (occurrence: TR)
  Receive Date: 20160523
  Receipt Date: 20160523
  Transmission Date: 20160815
  Serious: Yes (Hospitalization, Other)
  Sender: FDA-Public Use
  Company Number: TR-TEVA-661702ISR

PATIENT
  Age: 53 Year
  Sex: Male

DRUGS (6)
  1. METHOTREXATE [Suspect]
     Active Substance: METHOTREXATE
     Indication: RHEUMATOID ARTHRITIS
  2. PREDNISOLONE. [Suspect]
     Active Substance: PREDNISOLONE
     Dosage: 20 MILLIGRAM DAILY;
  3. TACROLIMUS. [Suspect]
     Active Substance: TACROLIMUS
     Indication: IMMUNOSUPPRESSION
  4. MYCOPHENOLATE MOFETIL. [Suspect]
     Active Substance: MYCOPHENOLATE MOFETIL
     Indication: IMMUNOSUPPRESSION
  5. COLCHICINE. [Suspect]
     Active Substance: COLCHICINE
     Indication: IMMUNOSUPPRESSION
  6. PREDNISOLONE. [Suspect]
     Active Substance: PREDNISOLONE
     Indication: IMMUNOSUPPRESSION

REACTIONS (15)
  - Toxicity to various agents [Recovered/Resolved]
  - Herpes simplex [Recovered/Resolved]
  - Colitis [Recovered/Resolved]
  - Stenotrophomonas infection [Recovered/Resolved]
  - Incorrect dose administered [Recovered/Resolved]
  - Emphysema [Recovered/Resolved]
  - Hypotension [Recovered/Resolved]
  - Necrotising colitis [Recovered/Resolved]
  - Metabolic acidosis [Recovered/Resolved]
  - Atelectasis [Recovered/Resolved]
  - Septic shock [Recovered/Resolved]
  - Respiratory distress [Recovered/Resolved]
  - Ileus [Recovered/Resolved]
  - Delirium [Recovered/Resolved]
  - Febrile neutropenia [Recovered/Resolved]
